FAERS Safety Report 7722148-6 (Version None)
Quarter: 2011Q3

REPORT INFORMATION
  Report Type: 
  Country: None (occurrence: None)
  Receive Date: 20110825
  Receipt Date: 20110819
  Transmission Date: 20111222
  Serious: Yes (Hospitalization, Other)
  Sender: FDA-Public Use
  Company Number: 924838

PATIENT
  Age: 33 Year
  Sex: Female
  Weight: 80 kg

DRUGS (3)
  1. (INFLIXIMAB) [Suspect]
     Indication: PSORIASIS
     Dosage: INTRAVENOUS (NOT OTHERWISE SPECIFIED)
     Route: 042
  2. NEORAL [Suspect]
     Indication: PSORIASIS
     Dosage: 250 MG MILLIGRAM(S)
     Dates: end: 20110413
  3. METHOTREXATE [Suspect]
     Indication: PSORIASIS

REACTIONS (6)
  - ACUTE PSYCHOSIS [None]
  - DRUG INTERACTION [None]
  - BLOOD MAGNESIUM DECREASED [None]
  - DELIRIUM [None]
  - MATERNAL EXPOSURE DURING PREGNANCY [None]
  - RENAL CANCER [None]
